FAERS Safety Report 19405530 (Version 2)
Quarter: 2021Q2

REPORT INFORMATION
  Report Type: Other
  Country: AU (occurrence: AU)
  Receive Date: 20210611
  Receipt Date: 20210624
  Transmission Date: 20210717
  Serious: Yes (Death)
  Sender: FDA-Public Use
  Company Number: AU-ROCHE-2392493

PATIENT
  Sex: Male
  Weight: 73 kg

DRUGS (1)
  1. BEVACIZUMAB. [Suspect]
     Active Substance: BEVACIZUMAB
     Indication: ASTROCYTOMA
     Dosage: 400 MG/16 ML?QTY 2 VIALS: 2X400MG
     Route: 042

REACTIONS (3)
  - Off label use [Unknown]
  - Weight increased [Unknown]
  - Death [Fatal]
